FAERS Safety Report 5575031-9 (Version None)
Quarter: 2007Q4

REPORT INFORMATION
  Report Type: 
  Country: None (occurrence: None)
  Receive Date: 20071221
  Receipt Date: 20071221
  Transmission Date: 20080405
  Serious: Yes (Death, Hospitalization)
  Sender: FDA-Public Use
  Company Number: None

PATIENT
  Age: 63 Year
  Sex: Male
  Weight: 110.4 kg

DRUGS (25)
  1. ZACTIMA [Suspect]
     Indication: GLIOBLASTOMA MULTIFORME
     Dosage: 200 MG QD PO
     Route: 048
     Dates: start: 20071016, end: 20071206
  2. DECADRON [Suspect]
     Indication: BRAIN OEDEMA
     Dosage: 8 MG PO BID
     Route: 048
     Dates: end: 20071212
  3. ALLOPURINOL [Concomitant]
  4. ATENOLOL [Concomitant]
  5. ATOVAQUONE SUSPENSION [Concomitant]
  6. CARDURA [Concomitant]
  7. FOLIC ACID [Concomitant]
  8. KEPPRA [Concomitant]
  9. LANTUS [Concomitant]
  10. LASIX [Concomitant]
  11. LOMOTIL (DIPHENOXYLATE W/ATROPINE) [Concomitant]
  12. VITAMIN CAP [Concomitant]
  13. MYCELEX TROCHES (CLOTRIMAZOLE TROCHE) [Concomitant]
  14. NYSTATIN ELIXIR (NYSTATIN SUSPENSION) [Concomitant]
  15. NYSTATIN [Concomitant]
  16. PEPCID [Concomitant]
  17. PRAVACHOL [Concomitant]
  18. PROSCAR (FINASTERIDE) (BPH)) [Concomitant]
  19. REGLAN [Concomitant]
  20. TEMODAR [Concomitant]
  21. TRAMADOL HCL [Concomitant]
  22. TRAZODONE HCL [Concomitant]
  23. TRICOR (FENOFIBRATE (TRICOR)) [Concomitant]
  24. TYLENOL (CAPLET) [Concomitant]
  25. VALTREX [Concomitant]

REACTIONS (12)
  - BACTERAEMIA [None]
  - BACTERIAL SEPSIS [None]
  - DUODENAL ULCER [None]
  - GASTRIC ULCER [None]
  - HYPOTENSION [None]
  - LEUKOPENIA [None]
  - PANCYTOPENIA [None]
  - REFUSAL OF TREATMENT BY RELATIVE [None]
  - RESPIRATORY DISTRESS [None]
  - SUPRAVENTRICULAR TACHYCARDIA [None]
  - THROMBOCYTOPENIA [None]
  - UPPER GASTROINTESTINAL HAEMORRHAGE [None]
